FAERS Safety Report 11620476 (Version 1)
Quarter: 2015Q4

REPORT INFORMATION
  Report Type: Spontaneous
  Country: US (occurrence: US)
  Receive Date: 20151012
  Receipt Date: 20151012
  Transmission Date: 20160304
  Serious: Yes (Death, Other)
  Sender: FDA-Public Use
  Company Number: US-GILEAD-2015-0175768

PATIENT
  Age: 72 Year
  Sex: Male

DRUGS (1)
  1. VISTIDE [Suspect]
     Active Substance: CIDOFOVIR
     Indication: PRIMARY EFFUSION LYMPHOMA
     Dosage: 3 MG/KG, UNK
     Route: 034

REACTIONS (6)
  - Drug intolerance [Unknown]
  - Acute kidney injury [Unknown]
  - Off label use [Unknown]
  - Incorrect route of drug administration [Unknown]
  - Primary effusion lymphoma [Fatal]
  - Drug ineffective for unapproved indication [Unknown]
